FAERS Safety Report 14776542 (Version 1)
Quarter: 2018Q2

REPORT INFORMATION
  Report Type: Spontaneous
  Country: FR (occurrence: FR)
  Receive Date: 20180418
  Receipt Date: 20180418
  Transmission Date: 20180711
  Serious: Yes (Other)
  Sender: FDA-Public Use
  Company Number: PHHY2017FR202379

PATIENT
  Age: 64 Year
  Sex: Male
  Weight: 65 kg

DRUGS (11)
  1. TACROLIMUS. [Suspect]
     Active Substance: TACROLIMUS
     Indication: RENAL TRANSPLANT
     Dosage: 9.5 MG, QD
     Route: 065
     Dates: start: 20170310
  2. TACROLIMUS. [Suspect]
     Active Substance: TACROLIMUS
     Dosage: 11.5 MG, QD
     Route: 065
     Dates: start: 20170602
  3. TACROLIMUS. [Suspect]
     Active Substance: TACROLIMUS
     Dosage: 10.5 MG, QD
     Route: 065
     Dates: start: 20171007
  4. CELLCEPT [Concomitant]
     Active Substance: MYCOPHENOLATE MOFETIL\MYCOPHENOLATE MOFETIL HYDROCHLORIDE
     Dosage: 1500 OT, QD
     Route: 065
     Dates: start: 20161212, end: 20170328
  5. TACROLIMUS. [Suspect]
     Active Substance: TACROLIMUS
     Dosage: 11 MG, QD
     Route: 065
     Dates: start: 20170519
  6. CORTANCYL [Concomitant]
     Active Substance: PREDNISONE
     Indication: IMMUNOSUPPRESSION
     Dosage: 5 UNK, ONCE DAILY
     Route: 065
     Dates: start: 20170202
  7. TACROLIMUS. [Suspect]
     Active Substance: TACROLIMUS
     Dosage: 10 MG, QD
     Route: 065
     Dates: start: 20170320
  8. TACROLIMUS. [Suspect]
     Active Substance: TACROLIMUS
     Dosage: 11 MG, UNK
     Route: 065
     Dates: start: 20170407
  9. TACROLIMUS. [Suspect]
     Active Substance: TACROLIMUS
     Dosage: 11.5 MG, UNK
     Route: 065
     Dates: start: 20170513
  10. TACROLIMUS. [Suspect]
     Active Substance: TACROLIMUS
     Dosage: 11 MG, QD
     Route: 065
     Dates: start: 20170718
  11. CELLCEPT [Concomitant]
     Active Substance: MYCOPHENOLATE MOFETIL\MYCOPHENOLATE MOFETIL HYDROCHLORIDE
     Indication: IMMUNOSUPPRESSION
     Dosage: 1000 OT, QD
     Route: 065
     Dates: start: 20170329

REACTIONS (1)
  - Pyelonephritis [Recovered/Resolved]

NARRATIVE: CASE EVENT DATE: 20170418
